FAERS Safety Report 13434334 (Version 5)
Quarter: 2017Q2

REPORT INFORMATION
  Report Type: Spontaneous
  Country: US (occurrence: US)
  Receive Date: 20170412
  Receipt Date: 20170622
  Transmission Date: 20170830
  Serious: Yes (Hospitalization, Other)
  Sender: FDA-Public Use
  Company Number: US-PFIZER INC-2017153372

PATIENT
  Age: 49 Year
  Sex: Female
  Weight: 73.92 kg

DRUGS (1)
  1. EPIPEN [Suspect]
     Active Substance: EPINEPHRINE
     Indication: DRUG HYPERSENSITIVITY
     Dosage: 0.3 MG, ONCE
     Route: 030
     Dates: start: 20170317, end: 20170317

REACTIONS (5)
  - Hypertension [Recovered/Resolved]
  - Migraine [Recovered/Resolved]
  - Device use issue [Recovered/Resolved]
  - Device failure [Recovered/Resolved]
  - Product quality issue [Recovered/Resolved]

NARRATIVE: CASE EVENT DATE: 20170317
